FAERS Safety Report 18702555 (Version 1)
Quarter: 2021Q1

REPORT INFORMATION
  Report Type: Spontaneous
  Country: US (occurrence: US)
  Receive Date: 20210105
  Receipt Date: 20210105
  Transmission Date: 20210419
  Serious: No
  Sender: FDA-Public Use
  Company Number: US-WALMART PREMIER BRANDS OF AMERICA-2103952

PATIENT
  Age: 60 Year
  Sex: Male

DRUGS (10)
  1. CLOPIDOGREL [Suspect]
     Active Substance: CLOPIDOGREL BISULFATE
  2. DIPHENHYDRAMINE HYDROCHLORIDE AND ZINC ACETATE [Suspect]
     Active Substance: DIPHENHYDRAMINE HYDROCHLORIDE\ZINC ACETATE
     Indication: PRURITUS
     Route: 061
     Dates: start: 20181130, end: 20181130
  3. METFORMIN [Suspect]
     Active Substance: METFORMIN HYDROCHLORIDE
  4. METOPROLOL. [Suspect]
     Active Substance: METOPROLOL
  5. HYDROCODONE BITARTRATE. [Suspect]
     Active Substance: HYDROCODONE BITARTRATE
  6. ATROVASTATIN [Suspect]
     Active Substance: ATORVASTATIN CALCIUM
  7. ASPIRIN. [Suspect]
     Active Substance: ASPIRIN
  8. AMLODIPINE [Suspect]
     Active Substance: AMLODIPINE BESYLATE
  9. SILVER SULFADIAZINE. [Concomitant]
     Active Substance: SILVER SULFADIAZINE
  10. LOSARTAN. [Suspect]
     Active Substance: LOSARTAN

REACTIONS (1)
  - Genital burning sensation [Recovered/Resolved]

NARRATIVE: CASE EVENT DATE: 20181130
